FAERS Safety Report 7631192-9 (Version None)
Quarter: 2011Q3

REPORT INFORMATION
  Report Type: 
  Country: None (occurrence: None)
  Receive Date: 20110725
  Receipt Date: 20110714
  Transmission Date: 20111222
  Serious: Yes (Hospitalization, Other)
  Sender: FDA-Public Use
  Company Number: US-JNJFOC-20110706695

PATIENT
  Age: 54 Year
  Sex: Male

DRUGS (25)
  1. XANAX [Suspect]
     Route: 048
     Dates: start: 20110101
  2. XANAX [Suspect]
     Route: 048
     Dates: start: 20101001
  3. XANAX [Suspect]
     Indication: NERVOUSNESS
     Dosage: START DATE: 1984-1985
     Route: 048
     Dates: end: 19850101
  4. XANAX [Suspect]
     Indication: ANXIETY
     Dosage: START DATE: 1984-1985
     Route: 048
     Dates: end: 19850101
  5. XANAX [Suspect]
     Route: 048
     Dates: start: 20101001
  6. TOPIRAMATE [Suspect]
     Indication: POST-TRAUMATIC STRESS DISORDER
     Route: 048
     Dates: start: 20090401, end: 20100901
  7. XANAX [Suspect]
     Indication: BIPOLAR DISORDER
     Route: 048
     Dates: start: 20110101
  8. XANAX [Suspect]
     Dosage: START DATE: 1984-1985
     Route: 048
     Dates: end: 19850101
  9. XANAX [Suspect]
     Route: 048
     Dates: start: 20101001
  10. XANAX [Suspect]
     Route: 048
     Dates: start: 20110101
  11. ZOLOFT [Suspect]
     Indication: DEPRESSION
     Route: 048
     Dates: start: 20110401
  12. ESOMEPRAZOLE MAGNESIUM [Concomitant]
     Indication: PRODUCT USED FOR UNKNOWN INDICATION
     Route: 065
  13. TOPIRAMATE [Suspect]
     Indication: ANXIETY
     Route: 048
     Dates: start: 20090401, end: 20100901
  14. TOPAMAX [Suspect]
     Indication: PRODUCT USED FOR UNKNOWN INDICATION
     Route: 048
     Dates: end: 20110101
  15. XANAX [Suspect]
     Indication: POST-TRAUMATIC STRESS DISORDER
     Dosage: START DATE: 1984-1985
     Route: 048
     Dates: end: 19850101
  16. XANAX [Suspect]
     Route: 048
     Dates: start: 20101001
  17. XANAX [Suspect]
     Route: 048
     Dates: start: 20110101
  18. TOPIRAMATE [Suspect]
     Indication: NERVOUSNESS
     Route: 048
     Dates: start: 20090401, end: 20100901
  19. XANAX [Suspect]
     Indication: PANIC ATTACK
     Dosage: START DATE: 1984-1985
     Route: 048
     Dates: end: 19850101
  20. ATENOLOL [Concomitant]
     Indication: HYPERTENSION
     Route: 065
  21. PRILOSEC [Concomitant]
     Indication: PRODUCT USED FOR UNKNOWN INDICATION
     Route: 065
  22. XANAX [Suspect]
     Route: 048
     Dates: start: 20110101
  23. XANAX [Suspect]
     Route: 048
     Dates: start: 20101001
  24. TOPIRAMATE [Suspect]
     Indication: BIPOLAR DISORDER
     Route: 048
     Dates: start: 20090401, end: 20100901
  25. ZOLOFT [Suspect]
     Route: 048

REACTIONS (17)
  - BLOOD PRESSURE DECREASED [None]
  - BLOOD CHOLESTEROL INCREASED [None]
  - HEADACHE [None]
  - GENERALISED OEDEMA [None]
  - HYPOAESTHESIA [None]
  - DIZZINESS [None]
  - INTERVERTEBRAL DISC PROTRUSION [None]
  - SUICIDAL IDEATION [None]
  - SUICIDE ATTEMPT [None]
  - SYNCOPE [None]
  - PAIN [None]
  - KIDNEY INFECTION [None]
  - URETERIC OBSTRUCTION [None]
  - SPINAL COLUMN STENOSIS [None]
  - MENISCUS OPERATION [None]
  - NEPHROLITHIASIS [None]
  - INFECTION [None]
